FAERS Safety Report 6235168-8 (Version None)
Quarter: 2009Q2

REPORT INFORMATION
  Report Type: 
  Country: None (occurrence: None)
  Receive Date: 20090618
  Receipt Date: 20081125
  Transmission Date: 20091009
  Serious: Yes (Other)
  Sender: FDA-Public Use
  Company Number: US-PFIZER INC-2009223953

PATIENT
  Age: 58 Year
  Sex: Female
  Weight: 88.889 kg

DRUGS (1)
  1. NEURONTIN [Suspect]
     Indication: NERVE INJURY

REACTIONS (1)
  - ANAPHYLACTIC SHOCK [None]
